FAERS Safety Report 7635344-3 (Version None)
Quarter: 2011Q3

REPORT INFORMATION
  Report Type: 
  Country: None (occurrence: None)
  Receive Date: 20110726
  Receipt Date: 20110720
  Transmission Date: 20111222
  Serious: Yes (Other)
  Sender: FDA-Public Use
  Company Number: US-SANOFI-AVENTIS-2009SA007563

PATIENT
  Age: 60 Year
  Sex: Female

DRUGS (2)
  1. LANTUS [Suspect]
     Indication: TYPE 2 DIABETES MELLITUS
     Dosage: 20-25 UNITS AT NIGHT
     Route: 058
  2. OPTICLICK [Suspect]
     Indication: TYPE 2 DIABETES MELLITUS

REACTIONS (6)
  - COLON NEOPLASM [None]
  - MUSCULOSKELETAL PAIN [None]
  - SWELLING [None]
  - BLOOD GLUCOSE INCREASED [None]
  - CONDITION AGGRAVATED [None]
  - DRUG INEFFECTIVE [None]
